FAERS Safety Report 6170173-1 (Version None)
Quarter: 2009Q2

REPORT INFORMATION
  Report Type: 
  Country: None (occurrence: None)
  Receive Date: 20090427
  Receipt Date: 20090427
  Transmission Date: 20091009
  Serious: No
  Sender: FDA-Public Use
  Company Number: None

PATIENT
  Sex: Female
  Weight: 90.2658 kg

DRUGS (1)
  1. REGLAN [Suspect]
     Indication: ABDOMINAL DISCOMFORT
     Dosage: 10 MG 1 TABLET A DAY
     Dates: start: 20070101, end: 20070804

REACTIONS (3)
  - ABDOMINAL DISCOMFORT [None]
  - HEAD TITUBATION [None]
  - TREMOR [None]
